FAERS Safety Report 5016659-4 (Version None)
Quarter: 2006Q2

REPORT INFORMATION
  Report Type: 
  Country: None (occurrence: None)
  Receive Date: 20060526
  Receipt Date: 20060512
  Transmission Date: 20061013
  Serious: Yes (Hospitalization)
  Sender: FDA-Public Use
  Company Number: 14082

PATIENT
  Age: 72 Year
  Sex: Female

DRUGS (4)
  1. METHOTREXATE [Suspect]
     Indication: RHEUMATOID ARTHRITIS
     Dosage: 10 MG WEEKLY SC
     Route: 058
     Dates: start: 19971022
  2. ENBREL [Suspect]
     Indication: RHEUMATOID ARTHRITIS
     Dosage: 50 MG DAILY SC
     Route: 058
     Dates: start: 20031212
  3. PREDNISOLONE [Concomitant]
  4. FOLIC ACID [Concomitant]

REACTIONS (1)
  - BREAST CANCER FEMALE [None]
